FAERS Safety Report 13384069 (Version 1)
Quarter: 2017Q1

REPORT INFORMATION
  Report Type: Spontaneous
  Country: US (occurrence: US)
  Receive Date: 20170329
  Receipt Date: 20170329
  Transmission Date: 20170429
  Serious: Yes (Other)
  Sender: FDA-Public Use
  Company Number: US-BAUSCH-BL-2017-007724

PATIENT
  Sex: Female
  Weight: 52.21 kg

DRUGS (5)
  1. CHROMIUM PICOLINATE [Suspect]
     Active Substance: CHROMIUM PICOLINATE
     Indication: PRODUCT USED FOR UNKNOWN INDICATION
     Route: 065
  2. COLLYRIUM EYE WASH [Suspect]
     Active Substance: WATER
     Indication: DRY EYE
     Dosage: AS NEEDED
     Route: 047
  3. VITAMIN C [Concomitant]
     Active Substance: ASCORBIC ACID
     Indication: VITAMIN SUPPLEMENTATION
  4. VISINE [Concomitant]
     Active Substance: TETRAHYDROZOLINE HYDROCHLORIDE
     Indication: DRY EYE
     Route: 061
  5. COLLYRIUM EYE WASH [Suspect]
     Active Substance: WATER
     Route: 047
     Dates: start: 20170314, end: 20170316

REACTIONS (11)
  - Scapula fracture [Recovered/Resolved]
  - Corneal disorder [Unknown]
  - Blood glucose decreased [Unknown]
  - Weight decreased [Unknown]
  - Cataract [Unknown]
  - Hypothyroidism [Unknown]
  - Instillation site pain [Not Recovered/Not Resolved]
  - Accidental overdose [Unknown]
  - Instillation site pruritus [Not Recovered/Not Resolved]
  - Fall [Unknown]
  - Vision blurred [Not Recovered/Not Resolved]

NARRATIVE: CASE EVENT DATE: 1959
